FAERS Safety Report 15327442 (Version 1)
Quarter: 2018Q3

REPORT INFORMATION
  Report Type: Spontaneous
  Country: US (occurrence: US)
  Receive Date: 20180828
  Receipt Date: 20180828
  Transmission Date: 20181010
  Serious: No
  Sender: FDA-Public Use
  Company Number: US-ALLERGAN-1820022US

PATIENT
  Sex: Male
  Weight: 58.96 kg

DRUGS (8)
  1. ESCITALOPRAM OXALATE ? BP [Suspect]
     Active Substance: ESCITALOPRAM OXALATE
     Indication: DEPRESSION
     Dosage: 10 MG, QD
     Route: 065
     Dates: start: 2016
  2. VALIUM [Concomitant]
     Active Substance: DIAZEPAM
     Indication: ANXIETY
     Dosage: UNK
  3. HUMIRA [Suspect]
     Active Substance: ADALIMUMAB
     Indication: CROHN^S DISEASE
     Dosage: 40 MG, Q2WEEKS
     Route: 058
  4. BUDESONIDE. [Concomitant]
     Active Substance: BUDESONIDE
     Route: 048
  5. SALICYLIC ACID. [Suspect]
     Active Substance: SALICYLIC ACID
     Indication: DERMATITIS
     Dosage: UNK
     Route: 061
  6. LISINOPRIL. [Concomitant]
     Active Substance: LISINOPRIL
  7. PANTOPRAZOLE [Concomitant]
     Active Substance: PANTOPRAZOLE
  8. CARVEDILOL. [Concomitant]
     Active Substance: CARVEDILOL

REACTIONS (17)
  - Apathy [Not Recovered/Not Resolved]
  - Toothache [Not Recovered/Not Resolved]
  - Fatigue [Not Recovered/Not Resolved]
  - Dry skin [Not Recovered/Not Resolved]
  - Weight decreased [Not Recovered/Not Resolved]
  - Self-injurious ideation [Not Recovered/Not Resolved]
  - Rash macular [Unknown]
  - Pruritus [Not Recovered/Not Resolved]
  - Pain of skin [Not Recovered/Not Resolved]
  - Decreased appetite [Not Recovered/Not Resolved]
  - Erectile dysfunction [Not Recovered/Not Resolved]
  - Disturbance in sexual arousal [Not Recovered/Not Resolved]
  - Dermatitis [Not Recovered/Not Resolved]
  - Squamous cell carcinoma [Not Recovered/Not Resolved]
  - Gingivitis [Recovering/Resolving]
  - Gingival atrophy [Not Recovered/Not Resolved]
  - Palpitations [Recovered/Resolved]

NARRATIVE: CASE EVENT DATE: 2017
